FAERS Safety Report 8978364 (Version 1)
Quarter: 2012Q4

REPORT INFORMATION
  Report Type: 
  Country: US (occurrence: US)
  Receive Date: 20121220
  Receipt Date: 20121220
  Transmission Date: 20130627
  Serious: Yes (Other)
  Sender: FDA-Public Use
  Company Number: US-PERRIGO-12US010664

PATIENT
  Age: 27 Year
  Sex: Male
  Weight: 136.5 kg

DRUGS (2)
  1. DIPHENHYDRAMINE HYDROCHLORIDE [Suspect]
     Indication: RASH
     Dosage: 120 ml, single
     Route: 048
     Dates: start: 20121210, end: 20121210
  2. DIPHENHYDRAMINE HYDROCHLORIDE [Suspect]
     Indication: URTICARIA

REACTIONS (6)
  - Altered state of consciousness [Recovering/Resolving]
  - Blood pressure increased [Unknown]
  - Palpitations [Recovered/Resolved]
  - Vomiting [Recovered/Resolved]
  - Overdose [Recovered/Resolved]
  - Off label use [Recovered/Resolved]
